FAERS Safety Report 15093176 (Version 1)
Quarter: 2018Q2

REPORT INFORMATION
  Report Type: Report from Study
  Country: US (occurrence: US)
  Receive Date: 20180629
  Receipt Date: 20180629
  Transmission Date: 20180711
  Serious: Yes (Hospitalization)
  Sender: FDA-Public Use
  Company Number: US-ASTRAZENECA-2017SF12086

PATIENT
  Age: 36 Year
  Sex: Female
  Weight: 63.3 kg

DRUGS (9)
  1. DRISDOL [Concomitant]
     Active Substance: ERGOCALCIFEROL
  2. ZOLOFT [Concomitant]
     Active Substance: SERTRALINE HYDROCHLORIDE
  3. DURAGESIC [Concomitant]
     Active Substance: FENTANYL
  4. DURVALUMAB. [Suspect]
     Active Substance: DURVALUMAB
     Indication: NON-SMALL CELL LUNG CANCER
     Dosage: 750 MG ON DAY ONE AND DAY 15 OF EVERY CYCLE
     Route: 042
     Dates: start: 20171005, end: 20171011
  5. DURVALUMAB. [Suspect]
     Active Substance: DURVALUMAB
     Indication: NON-SMALL CELL LUNG CANCER
     Dosage: 750 MG ON DAY ONE AND DAY 15 OF EVERY CYCLE
     Route: 042
     Dates: start: 20171025
  6. LY3022855 [Suspect]
     Active Substance: INVESTIGATIONAL PRODUCT
     Indication: NON-SMALL CELL LUNG CANCER
     Dosage: 100 MG WEEKLY OF EVERY 28-DAY CYCLE
     Route: 042
     Dates: start: 20171101
  7. HYDROMORPHONE [Concomitant]
     Active Substance: HYDROMORPHONE
  8. LY3022855 [Suspect]
     Active Substance: INVESTIGATIONAL PRODUCT
     Indication: NON-SMALL CELL LUNG CANCER
     Dosage: 100 MG WEEKLY OF EVERY 28-DAY CYCLE
     Route: 042
     Dates: start: 20171005, end: 20171011
  9. TESSALON [Concomitant]
     Active Substance: BENZONATATE

REACTIONS (3)
  - Pulmonary embolism [Recovered/Resolved]
  - Peritonitis bacterial [Recovered/Resolved]
  - Generalised oedema [Recovered/Resolved]

NARRATIVE: CASE EVENT DATE: 20171014
